FAERS Safety Report 20474780 (Version 1)
Quarter: 2022Q1

REPORT INFORMATION
  Report Type: Spontaneous
  Country: US (occurrence: US)
  Receive Date: 20220215
  Receipt Date: 20220215
  Transmission Date: 20220424
  Serious: Yes (Other)
  Sender: FDA-Public Use
  Company Number: US-GLAXOSMITHKLINE-US2022GSK023823

PATIENT
  Sex: Male

DRUGS (8)
  1. ZANTAC [Suspect]
     Active Substance: RANITIDINE HYDROCHLORIDE
     Indication: Gastrooesophageal reflux disease
     Dosage: 150 MG, QD
     Route: 065
     Dates: start: 200601, end: 201312
  2. ZANTAC [Suspect]
     Active Substance: RANITIDINE HYDROCHLORIDE
     Dosage: 150 MG, TWICE
     Route: 065
     Dates: start: 200601, end: 201312
  3. ZANTAC [Suspect]
     Active Substance: RANITIDINE HYDROCHLORIDE
     Indication: Gastrooesophageal reflux disease
     Dosage: 150 MG, QD
     Route: 065
     Dates: start: 200601, end: 201312
  4. ZANTAC [Suspect]
     Active Substance: RANITIDINE HYDROCHLORIDE
     Dosage: 150 MG, TWICE
     Route: 065
     Dates: start: 200601, end: 201312
  5. RANITIDINE [Suspect]
     Active Substance: RANITIDINE
     Indication: Gastrooesophageal reflux disease
     Dosage: 150 MG, QD
     Route: 065
     Dates: start: 200601, end: 201312
  6. RANITIDINE [Suspect]
     Active Substance: RANITIDINE
     Dosage: 150 MG, TWICE
     Route: 065
     Dates: start: 200601, end: 201312
  7. RANITIDINE [Suspect]
     Active Substance: RANITIDINE
     Indication: Gastrooesophageal reflux disease
     Dosage: 150 MG, QD
     Route: 065
     Dates: start: 200601, end: 201312
  8. RANITIDINE [Suspect]
     Active Substance: RANITIDINE
     Dosage: 150 MG, TWICE
     Route: 065
     Dates: start: 200601, end: 201312

REACTIONS (1)
  - Bladder cancer [Unknown]
